FAERS Safety Report 21456646 (Version 1)
Quarter: 2022Q4

REPORT INFORMATION
  Report Type: Spontaneous
  Country: NL (occurrence: NL)
  Receive Date: 20221014
  Receipt Date: 20221014
  Transmission Date: 20230113
  Serious: Yes (Death, Hospitalization, Other)
  Sender: FDA-Public Use
  Company Number: NL-LDELTA-NLLD0039448

PATIENT
  Age: 23 Year
  Sex: Male

DRUGS (2)
  1. CLOZAPINE [Suspect]
     Active Substance: CLOZAPINE
     Indication: Psychotic symptom
     Dosage: 250 MILLIGRAM, ONCE A DAY
     Route: 048
  2. OLANZAPINE [Suspect]
     Active Substance: OLANZAPINE
     Indication: Psychotic symptom
     Dosage: 15 MILLIGRAM, ONCE A DAY
     Route: 065

REACTIONS (9)
  - Intestinal pseudo-obstruction [Fatal]
  - Faecaloma [Fatal]
  - Gallbladder necrosis [Not Recovered/Not Resolved]
  - Loss of consciousness [Recovered/Resolved]
  - Multiple organ dysfunction syndrome [Fatal]
  - Intestinal ischaemia [Fatal]
  - Hypovolaemia [Unknown]
  - Gastrointestinal necrosis [Fatal]
  - Off label use [Recovered/Resolved]
